FAERS Safety Report 20722218 (Version 1)
Quarter: 2022Q2

REPORT INFORMATION
  Report Type: Report from Study
  Country: CA (occurrence: CA)
  Receive Date: 20220418
  Receipt Date: 20220418
  Transmission Date: 20220721
  Serious: Yes (Other)
  Sender: FDA-Public Use
  Company Number: CA-GILEAD-2022-0570816

PATIENT
  Age: 67 Year
  Sex: Female
  Weight: 82.6 kg

DRUGS (1)
  1. SACITUZUMAB GOVITECAN [Suspect]
     Active Substance: SACITUZUMAB GOVITECAN
     Indication: Triple negative breast cancer
     Dosage: 826 MG
     Route: 042
     Dates: start: 20220203, end: 20220303

REACTIONS (6)
  - Disease progression [Not Recovered/Not Resolved]
  - Weight decreased [Unknown]
  - Inappropriate schedule of product administration [Unknown]
  - Product temperature excursion issue [Unknown]
  - Product storage error [Unknown]
  - Intentional dose omission [Recovered/Resolved]

NARRATIVE: CASE EVENT DATE: 20220101
